FAERS Safety Report 10508620 (Version 1)
Quarter: 2014Q4

REPORT INFORMATION
  Report Type: Report from Study
  Country: US (occurrence: US)
  Receive Date: 20141009
  Receipt Date: 20141009
  Transmission Date: 20150528
  Serious: Yes (Other)
  Sender: FDA-Public Use
  Company Number: US-ALEXION PHARMACEUTICALS INC-A200800777

PATIENT

DRUGS (1)
  1. SOLIRIS [Suspect]
     Active Substance: ECULIZUMAB
     Indication: PAROXYSMAL NOCTURNAL HAEMOGLOBINURIA

REACTIONS (21)
  - Weight increased [Unknown]
  - Hepatic cirrhosis [Unknown]
  - Hiatus hernia [Unknown]
  - Blood lactate dehydrogenase increased [Unknown]
  - Back pain [Unknown]
  - Flatulence [Unknown]
  - Dysphagia [Unknown]
  - Myalgia [Unknown]
  - Quality of life decreased [Unknown]
  - Platelet disorder [Unknown]
  - Haemoglobin decreased [Unknown]
  - Oedema peripheral [Unknown]
  - Contusion [Unknown]
  - Road traffic accident [Unknown]
  - Headache [Unknown]
  - Fatigue [Unknown]
  - Gastrooesophageal reflux disease [Unknown]
  - Eye haemorrhage [Unknown]
  - Serum ferritin increased [Unknown]
  - Chronic kidney disease [Unknown]
  - Arthritis [Unknown]
